FAERS Safety Report 9892911 (Version 3)
Quarter: 2014Q2

REPORT INFORMATION
  Report Type: Spontaneous
  Country: US (occurrence: US)
  Receive Date: 20140213
  Receipt Date: 20140530
  Transmission Date: 20141212
  Serious: No
  Sender: FDA-Public Use
  Company Number: US-BIOGENIDEC-2014BI011054

PATIENT
  Sex: Female

DRUGS (1)
  1. TYSABRI [Suspect]
     Indication: MULTIPLE SCLEROSIS
     Route: 042
     Dates: start: 20100112, end: 20130828

REACTIONS (3)
  - Corneal abrasion [Unknown]
  - Infection [Unknown]
  - Multiple sclerosis relapse [Recovered/Resolved with Sequelae]
